FAERS Safety Report 7397012-5 (Version None)
Quarter: 2011Q1

REPORT INFORMATION
  Report Type: 
  Country: None (occurrence: None)
  Receive Date: 20110331
  Receipt Date: 20110331
  Transmission Date: 20110831
  Serious: Yes (Life-Threatening)
  Sender: FDA-Public Use
  Company Number: None

PATIENT
  Age: 2 Year
  Sex: Female

DRUGS (1)
  1. CHLORAL HYDRATE [Suspect]
     Indication: ANAESTHESIA PROCEDURE
     Dosage: 1,000 MG
     Dates: start: 19910101

REACTIONS (2)
  - DYSSTASIA [None]
  - SCREAMING [None]
